FAERS Safety Report 9679453 (Version 1)
Quarter: 2013Q4

REPORT INFORMATION
  Report Type: Spontaneous
  Country: US (occurrence: US)
  Receive Date: 20131109
  Receipt Date: 20131109
  Transmission Date: 20140711
  Serious: No
  Sender: FDA-Public Use
  Company Number: US-SANOFI-AVENTIS-2013SA048237

PATIENT
  Age: 23 Year
  Sex: Male

DRUGS (3)
  1. ALLEGRA-D [Suspect]
     Indication: HYPERSENSITIVITY
     Route: 065
     Dates: start: 20130509
  2. AFRIN /00070002/ [Concomitant]
  3. ZINC [Concomitant]

REACTIONS (4)
  - Malaise [Unknown]
  - Feeling abnormal [Unknown]
  - Paraesthesia [Unknown]
  - Extra dose administered [Unknown]
